FAERS Safety Report 18339274 (Version 2)
Quarter: 2020Q4

REPORT INFORMATION
  Report Type: Spontaneous
  Country: US (occurrence: US)
  Receive Date: 20201002
  Receipt Date: 20201012
  Transmission Date: 20210113
  Serious: No
  Sender: FDA-Public Use
  Company Number: US-PFIZER INC-2020376853

PATIENT
  Age: 38 Year
  Sex: Female
  Weight: 81.65 kg

DRUGS (3)
  1. TAPAZOLE [Suspect]
     Active Substance: METHIMAZOLE
     Indication: HYPERTHYROIDISM
     Dosage: 5 MG (1 TABLET), 5X/WEEK
     Route: 048
     Dates: start: 2001
  2. TAPAZOLE [Suspect]
     Active Substance: METHIMAZOLE
     Indication: BASEDOW^S DISEASE
     Dosage: 2.5 MG (HALF TABLET), 2X/WEEK (TUESDAY AND FRIDAY)
     Route: 048
     Dates: start: 2001
  3. TAPAZOLE [Suspect]
     Active Substance: METHIMAZOLE
     Indication: THYROID MASS

REACTIONS (4)
  - Fibromyalgia [Unknown]
  - Chronic fatigue syndrome [Unknown]
  - Rash papular [Unknown]
  - Off label use [Unknown]

NARRATIVE: CASE EVENT DATE: 2001
